FAERS Safety Report 11452929 (Version 1)
Quarter: 2015Q3

REPORT INFORMATION
  Report Type: Spontaneous
  Country: US (occurrence: US)
  Receive Date: 20150903
  Receipt Date: 20150903
  Transmission Date: 20151125
  Serious: No
  Sender: FDA-Public Use
  Company Number: US-ROCHE-749742

PATIENT
  Age: 57 Year
  Sex: Female

DRUGS (2)
  1. PEGASYS [Suspect]
     Active Substance: PEGINTERFERON ALFA-2A
     Indication: HEPATITIS C
     Route: 065
  2. RIBAVIRIN. [Suspect]
     Active Substance: RIBAVIRIN
     Indication: HEPATITIS C
     Dosage: IN DIVIDED DOSES (3/2)
     Route: 065

REACTIONS (5)
  - White blood cell count abnormal [Unknown]
  - Platelet count decreased [Unknown]
  - Mouth haemorrhage [Unknown]
  - Epistaxis [Unknown]
  - Haemoptysis [Unknown]

NARRATIVE: CASE EVENT DATE: 201012
